FAERS Safety Report 17641921 (Version 4)
Quarter: 2020Q2

REPORT INFORMATION
  Report Type: Report from Study
  Country: KR (occurrence: KR)
  Receive Date: 20200408
  Receipt Date: 20200517
  Transmission Date: 20200713
  Serious: Yes (Hospitalization)
  Sender: FDA-Public Use
  Company Number: KR-CELLTRION INC.-2020KR021056

PATIENT

DRUGS (8)
  1. FEROBA YOU [Concomitant]
     Indication: ANAEMIA
     Dosage: 80 MG, TID
     Route: 048
     Dates: start: 20191113
  2. NEXIUM I.V. [Concomitant]
     Active Substance: ESOMEPRAZOLE SODIUM
     Indication: PROPHYLAXIS
     Dosage: 20 MG, QD
     Route: 048
     Dates: start: 20190903
  3. HERZUMA [Suspect]
     Active Substance: TRASTUZUMAB-PKRB
     Indication: HER2 POSITIVE BREAST CANCER
     Dosage: 403 MG, EVERY 3 WEEKS
     Route: 042
     Dates: start: 20190829, end: 20191112
  4. DICAMAX [Concomitant]
     Indication: OSTEOPENIA
     Dosage: 1 TAB, QD
     Route: 048
     Dates: start: 20190806
  5. ULCERLMIN [Concomitant]
     Active Substance: SUCRALFATE
     Indication: PROPHYLAXIS
     Dosage: 15 ML, BID
     Route: 048
     Dates: start: 20190903
  6. PLAKON [Concomitant]
     Indication: PROPHYLAXIS
     Dosage: 3 MG, QD
     Route: 042
     Dates: start: 20191119, end: 20191119
  7. MEDILAC DS [Concomitant]
     Indication: PROPHYLAXIS AGAINST DIARRHOEA
     Dosage: 1 CAP, TID
     Route: 048
     Dates: start: 20190926
  8. COZARTAN [Concomitant]
     Active Substance: LOSARTAN POTASSIUM
     Indication: LEFT VENTRICULAR HYPERTROPHY
     Dosage: 50 MG, QD
     Route: 048
     Dates: start: 20190829

REACTIONS (1)
  - Enterocolitis [Recovered/Resolved]

NARRATIVE: CASE EVENT DATE: 20191115
